FAERS Safety Report 6276681-7 (Version None)
Quarter: 2009Q3

REPORT INFORMATION
  Report Type: 
  Country: None (occurrence: None)
  Receive Date: 20090722
  Receipt Date: 20080903
  Transmission Date: 20100115
  Serious: No
  Sender: FDA-Public Use
  Company Number: US-BRISTOL-MYERS SQUIBB COMPANY-14257315

PATIENT
  Sex: Male

DRUGS (2)
  1. COUMADIN [Suspect]
     Dosage: INTERRUPTED IN MID APR2008
     Dates: start: 20080101, end: 20080101
  2. LOVENOX [Suspect]

REACTIONS (3)
  - ARTHRALGIA [None]
  - GAIT DISTURBANCE [None]
  - MYALGIA [None]
